FAERS Safety Report 4738037-5 (Version None)
Quarter: 2005Q3

REPORT INFORMATION
  Report Type: 
  Country: None (occurrence: None)
  Receive Date: 20050805
  Receipt Date: 20050805
  Transmission Date: 20060218
  Serious: Yes (Hospitalization)
  Sender: FDA-Public Use
  Company Number: None

PATIENT
  Age: 46 Year

DRUGS (1)
  1. SPIRONOLACTONE [Suspect]
     Dosage: 300 MG PO BID
     Route: 048

REACTIONS (9)
  - ABDOMINAL DISTENSION [None]
  - ASCITES [None]
  - ASTHENIA [None]
  - HYPERKALAEMIA [None]
  - HYPONATRAEMIA [None]
  - NAUSEA [None]
  - POLYDIPSIA [None]
  - RENAL FAILURE [None]
  - VOMITING [None]
